FAERS Safety Report 15135892 (Version 1)
Quarter: 2018Q3

REPORT INFORMATION
  Report Type: Report from Study
  Country: US (occurrence: US)
  Receive Date: 20180712
  Receipt Date: 20180712
  Transmission Date: 20181010
  Serious: Yes (Death, Hospitalization)
  Sender: FDA-Public Use
  Company Number: US-SA-2018SA059778

PATIENT
  Age: 67 Year
  Sex: Male
  Weight: 61.2 kg

DRUGS (15)
  1. BLINDED SAR341402 [Suspect]
     Active Substance: INSULIN ASPART
     Indication: DIABETES MELLITUS
     Dosage: UNK UNK,AC
     Route: 058
     Dates: start: 20170830
  2. BUMETANIDE. [Concomitant]
     Active Substance: BUMETANIDE
     Indication: HYPERTENSION
     Dosage: UNK UNK,UNK
     Route: 048
     Dates: start: 2006, end: 20180502
  3. BLINDED INSULIN ASPART [Suspect]
     Active Substance: INSULIN ASPART
     Indication: DIABETES MELLITUS
     Dosage: UNK UNK,AC
     Route: 058
     Dates: start: 20170830
  4. ACICLOVIR [Concomitant]
     Active Substance: ACYCLOVIR
     Dosage: UNK UNK,UNK
     Route: 048
     Dates: start: 20180224, end: 20180502
  5. BLINDED JP_INSULIN ASPART [Suspect]
     Active Substance: INSULIN ASPART
     Indication: DIABETES MELLITUS
     Dosage: UNK UNK,AC
     Route: 058
     Dates: start: 20170830
  6. LISINOPRIL. [Concomitant]
     Active Substance: LISINOPRIL
     Indication: HYPERTENSION
     Dosage: UNK UNK,UNK
     Route: 048
     Dates: start: 2006, end: 20180502
  7. HYDROCHLOROTHIAZIDE. [Concomitant]
     Active Substance: HYDROCHLOROTHIAZIDE
     Indication: HYPERTENSION
     Dosage: UNK UNK,UNK
     Route: 048
     Dates: start: 2006, end: 20180502
  8. INSULIN GLARGINE [Suspect]
     Active Substance: INSULIN GLARGINE
     Indication: DIABETES MELLITUS
     Dosage: UNK UNK,QD
     Route: 058
     Dates: start: 20170830
  9. INDOMETACIN [Concomitant]
     Active Substance: INDOMETHACIN
     Dosage: UNK UNK,UNK
     Route: 048
     Dates: start: 20171122, end: 20180502
  10. LIPITOR [Concomitant]
     Active Substance: ATORVASTATIN CALCIUM
     Indication: DYSLIPIDAEMIA
     Dosage: UNK UNK,UNK
     Route: 048
     Dates: start: 2006, end: 20180502
  11. BLINDED NO STUDY DRUG GIVEN [Suspect]
     Active Substance: INVESTIGATIONAL PRODUCT
     Indication: DIABETES MELLITUS
     Dosage: UNK UNK,AC
     Route: 058
     Dates: start: 20170830
  12. FUROSEMIDE. [Concomitant]
     Active Substance: FUROSEMIDE
     Indication: HYPERTENSION
     Dosage: UNK UNK,UNK
     Route: 048
     Dates: start: 2006, end: 20180502
  13. BLINDED SAR341402 [Suspect]
     Active Substance: INSULIN ASPART
     Indication: DIABETES MELLITUS
     Dosage: UNK UNK,AC
     Route: 058
     Dates: start: 20170830
  14. OMEPRAZOLE. [Concomitant]
     Active Substance: OMEPRAZOLE
     Dosage: UNK UNK,UNK
     Route: 048
     Dates: end: 20180502
  15. ALLOPURINOL. [Concomitant]
     Active Substance: ALLOPURINOL
     Indication: PROPHYLAXIS
     Dosage: UNK UNK,UNK
     Route: 048
     Dates: start: 20180224, end: 20180502

REACTIONS (18)
  - Vertebral foraminal stenosis [None]
  - Coronary artery disease [None]
  - Asthenia [None]
  - Intervertebral disc protrusion [None]
  - Blood lactate dehydrogenase increased [None]
  - Blood bilirubin increased [None]
  - Pleural effusion [None]
  - Weight decreased [None]
  - Blood glucose decreased [None]
  - Paraesthesia [None]
  - Hypoaesthesia [None]
  - Blood pressure systolic increased [None]
  - Lung disorder [None]
  - Prolymphocytic leukaemia [Fatal]
  - Hepatosplenomegaly [None]
  - Platelet count decreased [None]
  - Cerebral ischaemia [None]
  - Blood uric acid decreased [None]

NARRATIVE: CASE EVENT DATE: 20180224
